FAERS Safety Report 8769293 (Version 2)
Quarter: 2013Q3

REPORT INFORMATION
  Report Type: Spontaneous
  Country: US (occurrence: US)
  Receive Date: 20120904
  Receipt Date: 20130807
  Transmission Date: 20140515
  Serious: No
  Sender: FDA-Public Use
  Company Number: US-AMGEN-USASP2012048343

PATIENT
  Age: 60 Year
  Sex: Female

DRUGS (2)
  1. ENBREL [Suspect]
     Indication: PSORIASIS
     Dosage: 50 MG, QWK
     Route: 065
     Dates: start: 20050801
  2. TREXALL [Concomitant]
     Dosage: UNK

REACTIONS (4)
  - Asthma [Recovered/Resolved]
  - Drug effect incomplete [Unknown]
  - Seasonal allergy [Not Recovered/Not Resolved]
  - Psoriasis [Not Recovered/Not Resolved]
